FAERS Safety Report 4667417-1 (Version None)
Quarter: 2005Q2

REPORT INFORMATION
  Report Type: 
  Country: None (occurrence: None)
  Receive Date: 20050517
  Receipt Date: 20050327
  Transmission Date: 20051028
  Serious: Yes (Other)
  Sender: FDA-Public Use
  Company Number: PHEH2005US03697

PATIENT
  Age: 61 Year
  Sex: Female

DRUGS (8)
  1. GLEEVEC [Suspect]
     Indication: CHRONIC MYELOID LEUKAEMIA
     Dosage: 400 MG, QD, ORAL;  NO TREATMENT;  300 MG, QD ORAL;  400 MG, QD
     Route: 048
     Dates: start: 20041101, end: 20050201
  2. GLEEVEC [Suspect]
     Indication: CHRONIC MYELOID LEUKAEMIA
     Dosage: 400 MG, QD, ORAL;  NO TREATMENT;  300 MG, QD ORAL;  400 MG, QD
     Route: 048
     Dates: start: 20050201, end: 20050201
  3. GLEEVEC [Suspect]
     Indication: CHRONIC MYELOID LEUKAEMIA
     Dosage: 400 MG, QD, ORAL;  NO TREATMENT;  300 MG, QD ORAL;  400 MG, QD
     Route: 048
     Dates: start: 20050201
  4. ESTRACE [Concomitant]
  5. PROMETRIUM [Concomitant]
  6. NORTRIPTYLINE HCL [Concomitant]
  7. ALLEGRA [Concomitant]
  8. KLONOPIN [Concomitant]

REACTIONS (6)
  - ABDOMINAL DISTENSION [None]
  - DIARRHOEA [None]
  - FLATULENCE [None]
  - NEUTROPHIL COUNT DECREASED [None]
  - OESOPHAGITIS [None]
  - WHITE BLOOD CELL COUNT DECREASED [None]
